FAERS Safety Report 5744205-6 (Version None)
Quarter: 2008Q2

REPORT INFORMATION
  Report Type: 
  Country: None (occurrence: None)
  Receive Date: 20080516
  Receipt Date: 20080505
  Transmission Date: 20081010
  Serious: Yes (Hospitalization)
  Sender: FDA-Public Use
  Company Number: A-US2008-20496

PATIENT
  Age: 36 Year
  Sex: Female

DRUGS (2)
  1. TRACLEER [Suspect]
     Indication: DRUG USE FOR UNKNOWN INDICATION
     Dosage: ORAL
     Route: 048
  2. VENTAVIS [Suspect]
     Indication: DRUG USE FOR UNKNOWN INDICATION
     Dosage: RESPIRATORY
     Route: 055

REACTIONS (1)
  - PNEUMONIA [None]
